FAERS Safety Report 21919817 (Version 1)
Quarter: 2023Q1

REPORT INFORMATION
  Report Type: Report from Study
  Country: CA (occurrence: CA)
  Receive Date: 20230127
  Receipt Date: 20230127
  Transmission Date: 20230417
  Serious: Yes (Other)
  Sender: FDA-Public Use
  Company Number: CA-002147023-NVSC2023CA014327

PATIENT
  Age: 66 Year
  Sex: Female

DRUGS (2)
  1. CYCLOSPORINE [Suspect]
     Active Substance: CYCLOSPORINE
     Indication: Chronic graft versus host disease
     Dosage: 25 MG, BID
     Route: 065
     Dates: start: 20191023, end: 20200505
  2. IMATINIB [Suspect]
     Active Substance: IMATINIB
     Indication: Chronic graft versus host disease
     Dosage: 100 MG, QD
     Route: 065
     Dates: start: 20200515

REACTIONS (4)
  - Renal impairment [Unknown]
  - Drug intolerance [Unknown]
  - Hypertension [Unknown]
  - Therapeutic product effect incomplete [Unknown]
